FAERS Safety Report 6643364-0 (Version None)
Quarter: 2010Q1

REPORT INFORMATION
  Report Type: 
  Country: None (occurrence: None)
  Receive Date: 20100319
  Receipt Date: 20100309
  Transmission Date: 20100710
  Serious: Yes (Hospitalization, Other)
  Sender: FDA-Public Use
  Company Number: PHHY2010FR14888

PATIENT
  Age: 60 Year
  Sex: Male

DRUGS (2)
  1. CERTICAN [Suspect]
     Dosage: 0.75 MG
     Route: 048
     Dates: start: 20080402, end: 20090902
  2. NEORAL [Suspect]
     Indication: HEART TRANSPLANT
     Dosage: UNK
     Route: 048
     Dates: start: 20070625

REACTIONS (5)
  - DYSPNOEA [None]
  - FACE OEDEMA [None]
  - LUNG ADENOCARCINOMA [None]
  - PLEURAL EFFUSION [None]
  - RENAL FAILURE [None]
